FAERS Safety Report 25054053 (Version 6)
Quarter: 2025Q2

REPORT INFORMATION
  Report Type: Spontaneous
  Country: US (occurrence: US)
  Receive Date: 20250307
  Receipt Date: 20250606
  Transmission Date: 20250716
  Serious: Yes (Hospitalization, Other)
  Sender: SANOFI AVENTIS
  Company Number: US-SA-2025SA066872

PATIENT
  Age: 32 Year
  Sex: Female

DRUGS (2)
  1. DUPIXENT [Suspect]
     Active Substance: DUPILUMAB
     Indication: Asthma
     Route: 058
     Dates: start: 20250303, end: 20250303
  2. DUPIXENT [Suspect]
     Active Substance: DUPILUMAB
     Dosage: 300 MG, QOW
     Route: 058
     Dates: start: 202503

REACTIONS (20)
  - Neuropathy peripheral [Unknown]
  - Chronic inflammatory demyelinating polyradiculoneuropathy [Unknown]
  - Myalgia [Unknown]
  - Muscular weakness [Unknown]
  - Paraesthesia [Unknown]
  - Dysstasia [Unknown]
  - Seizure [Unknown]
  - Tremor [Unknown]
  - Peripheral swelling [Unknown]
  - Weight decreased [Unknown]
  - Blood pressure increased [Unknown]
  - Vomiting [Unknown]
  - Dysarthria [Unknown]
  - Condition aggravated [Unknown]
  - Hypoaesthesia oral [Unknown]
  - Condition aggravated [Unknown]
  - Somnolence [Unknown]
  - Fall [Unknown]
  - Fatigue [Unknown]
  - Hypoaesthesia [Unknown]

NARRATIVE: CASE EVENT DATE: 20250101
